FAERS Safety Report 8731498 (Version 2)
Quarter: 2012Q4

REPORT INFORMATION
  Report Type: 
  Country: US (occurrence: US)
  Receive Date: 20120820
  Receipt Date: 20121005
  Transmission Date: 20130627
  Serious: Yes (Other)
  Sender: FDA-Public Use
  Company Number: PHEH2012US016058

PATIENT
  Age: 56 Year
  Sex: Male

DRUGS (1)
  1. EXELON PATCH [Suspect]
     Dosage: 9.5 mg, UNK
     Route: 062

REACTIONS (2)
  - Delirium tremens [Unknown]
  - Memory impairment [Unknown]
